FAERS Safety Report 19179635 (Version 1)
Quarter: 2021Q2

REPORT INFORMATION
  Report Type: Spontaneous
  Country: US (occurrence: US)
  Receive Date: 20210426
  Receipt Date: 20210426
  Transmission Date: 20210717
  Serious: Yes (Hospitalization, Other)
  Sender: FDA-Public Use
  Company Number: US-ACCORD-223197

PATIENT
  Age: 9 Month
  Sex: Female

DRUGS (6)
  1. MELPHALAN. [Suspect]
     Active Substance: MELPHALAN
     Indication: RETINOBLASTOMA
     Route: 047
  2. CARBOPLATIN. [Suspect]
     Active Substance: CARBOPLATIN
     Indication: RETINOBLASTOMA
     Route: 047
  3. CARBOPLATIN. [Suspect]
     Active Substance: CARBOPLATIN
     Indication: OFF LABEL USE
     Route: 047
  4. TOPOTECAN [Suspect]
     Active Substance: TOPOTECAN HYDROCHLORIDE
     Indication: RETINOBLASTOMA
     Route: 047
  5. DEXAMETHASONE. [Concomitant]
     Active Substance: DEXAMETHASONE
     Indication: RETINOBLASTOMA
     Route: 042
  6. TOPOTECAN [Suspect]
     Active Substance: TOPOTECAN HYDROCHLORIDE
     Indication: OFF LABEL USE
     Route: 047

REACTIONS (9)
  - Retinal detachment [Unknown]
  - Otitis media acute [Recovered/Resolved]
  - Periorbital swelling [Recovering/Resolving]
  - Leukopenia [Unknown]
  - Anaemia [Unknown]
  - Rhinovirus infection [Unknown]
  - Periorbital oedema [Recovering/Resolving]
  - Erythema of eyelid [Recovering/Resolving]
  - Off label use [Unknown]
